FAERS Safety Report 4648428-9 (Version None)
Quarter: 2005Q2

REPORT INFORMATION
  Report Type: 
  Country: None (occurrence: None)
  Receive Date: 20050427
  Receipt Date: 20050419
  Transmission Date: 20051028
  Serious: Yes (Hospitalization)
  Sender: FDA-Public Use
  Company Number: 2005-127606-NL

PATIENT
  Age: 50 Year
  Sex: Female

DRUGS (11)
  1. VECURONIUM BROMIDE [Suspect]
     Dosage: 2 MG ONCE/1 MG ONC/1 MG ONCE/1 MG ONCE; INTRAVENOUS NOS
     Route: 042
     Dates: start: 20050412, end: 20050412
  2. SEVOFULURANE [Suspect]
     Indication: MENTAL DISORDER
     Dosage: RESPIRATORY (INHALATION)
     Route: 055
     Dates: start: 20050412, end: 20050412
  3. FENTANYL CITRATE [Suspect]
     Indication: ANAESTHESIA
     Dosage: INTRAVENOUS (NOS)
     Route: 042
     Dates: start: 20050412, end: 20050412
  4. LIDOCAINE [Suspect]
     Indication: ANAESTHESIA
     Dosage: INTRAVENOUS (NOS)
     Route: 042
     Dates: start: 20050412, end: 20050412
  5. PROPOFOL [Suspect]
     Indication: ANAESTHESIA
     Dosage: INTRAVENOUS (NOS)
     Route: 042
     Dates: start: 20050412, end: 20050412
  6. BUPIVACAINE HCL [Suspect]
     Indication: POSTOPERATIVE CARE
     Dosage: 20 ML, INTRAVENOUS (NOS_
     Route: 042
     Dates: start: 20050412, end: 20050413
  7. FUROSEMIDE [Suspect]
     Indication: POSTOPERATIVE CARE
     Dosage: 50 ML; INTRAVENOUS (NOS)
     Route: 042
     Dates: start: 20050412, end: 20050413
  8. BROHEXINE HYDROCHLORIDE [Suspect]
     Indication: POSTOPERATIVE CARE
     Dosage: 12 MG, INTRAVENOUS (NOS)
     Route: 042
     Dates: start: 20050412, end: 20050413
  9. CEFAZOLIN SODIM [Suspect]
     Indication: INFECTION PROPHYLAXIS
     Dosage: 4 G, INTRAVENOUS (NOS)
     Route: 042
     Dates: start: 20050412, end: 20050413
  10. BUPRENORPHINE HCL [Suspect]
     Indication: POSTOPERATIVE CARE
     Dosage: 1 ML, INTRAVENOUS (NOS)
     Route: 042
     Dates: start: 20050412, end: 20050414
  11. DEXAPANTHENOL [Suspect]
     Dosage: 2500 MG, INTRAVENOUS (NOS)
     Route: 042
     Dates: start: 20050412, end: 20050414

REACTIONS (3)
  - ALANINE AMINOTRANSFERASE INCREASED [None]
  - ASPARTATE AMINOTRANSFERASE INCREASED [None]
  - BLOOD LACTATE DEHYDROGENASE INCREASED [None]
